FAERS Safety Report 7375609-6 (Version None)
Quarter: 2011Q1

REPORT INFORMATION
  Report Type: 
  Country: None (occurrence: None)
  Receive Date: 20110325
  Receipt Date: 20110202
  Transmission Date: 20110831
  Serious: No
  Sender: FDA-Public Use
  Company Number: US-BAYER-2011-014599

PATIENT
  Sex: Female
  Weight: 54 kg

DRUGS (2)
  1. MULTIVITAMINS AND IRON [Concomitant]
     Indication: VITAMIN SUPPLEMENTATION
  2. ALEVE (CAPLET) [Suspect]
     Indication: HEADACHE
     Dosage: 440 MG, BID
     Route: 048
     Dates: start: 20110129

REACTIONS (1)
  - NO ADVERSE EVENT [None]
